FAERS Safety Report 4526766-8 (Version None)
Quarter: 2004Q4

REPORT INFORMATION
  Report Type: 
  Country: None (occurrence: None)
  Receive Date: 20041213
  Receipt Date: 20041130
  Transmission Date: 20050328
  Serious: Yes (Death)
  Sender: FDA-Public Use
  Company Number: 2004UW17845

PATIENT
  Sex: Male

DRUGS (3)
  1. NAROPIN [Suspect]
     Dates: start: 20020814
  2. LIDOCAINE [Suspect]
     Dates: start: 20020814
  3. KENALOG [Suspect]
     Dates: start: 20020814

REACTIONS (24)
  - ABDOMINAL PAIN [None]
  - ACUTE RESPIRATORY FAILURE [None]
  - ANURIA [None]
  - ATELECTASIS [None]
  - BACK PAIN [None]
  - CLOSTRIDIAL INFECTION [None]
  - FAT NECROSIS [None]
  - GAS GANGRENE [None]
  - GENERAL PHYSICAL HEALTH DETERIORATION [None]
  - HAEMOGLOBIN DECREASED [None]
  - HAEMOGLOBIN S DECREASED [None]
  - LARGE INTESTINE PERFORATION [None]
  - LOBAR PNEUMONIA [None]
  - METABOLIC ACIDOSIS [None]
  - MUSCLE NECROSIS [None]
  - NECROSIS [None]
  - PAIN IN EXTREMITY [None]
  - PHARMACEUTICAL PRODUCT COMPLAINT [None]
  - PNEUMOMEDIASTINUM [None]
  - POST PROCEDURAL PAIN [None]
  - PROCEDURAL COMPLICATION [None]
  - RENAL FAILURE ACUTE [None]
  - RESTLESSNESS [None]
  - SEPTIC SHOCK [None]
